FAERS Safety Report 10059211 (Version 1)
Quarter: 2014Q2

REPORT INFORMATION
  Report Type: Spontaneous
  Country: US (occurrence: US)
  Receive Date: 20140404
  Receipt Date: 20140404
  Transmission Date: 20141212
  Serious: No
  Sender: FDA-Public Use
  Company Number: US-BAYER-2014-051018

PATIENT
  Sex: Male

DRUGS (1)
  1. ALEVE CAPLET [Suspect]
     Indication: PAIN PROPHYLAXIS
     Dosage: 1 DF, BID
     Route: 048

REACTIONS (2)
  - Medication error [None]
  - Incorrect drug administration duration [None]
